FAERS Safety Report 9709773 (Version 1)
Quarter: 2013Q4

REPORT INFORMATION
  Report Type: Spontaneous
  Country: US (occurrence: US)
  Receive Date: 20131126
  Receipt Date: 20131126
  Transmission Date: 20140711
  Serious: Yes (Life-Threatening, Hospitalization)
  Sender: FDA-Public Use
  Company Number: US-BRISTOL-MYERS SQUIBB COMPANY-19813831

PATIENT
  Age: 56 Year
  Sex: Female
  Weight: 90 kg

DRUGS (7)
  1. ABILIFY [Suspect]
     Indication: BIPOLAR DISORDER
     Dosage: DOSE WAS INCREASED TO 5MG AND THEN 10MG ON 24OCT2013
     Dates: start: 20131020
  2. HCTZ + TRIAMTERENE [Suspect]
     Dosage: 25MG/37.5 MG
  3. ATORVASTATIN [Concomitant]
     Dosage: AT BEDTIME
  4. CLONAZEPAM [Concomitant]
     Dosage: AT BEDTIME
  5. ADVAIR DISKUS [Concomitant]
  6. METOPROLOL [Concomitant]
  7. OMEPRAZOLE [Concomitant]

REACTIONS (4)
  - Cardiac arrest [Unknown]
  - Hypokalaemia [Unknown]
  - Electrocardiogram QT prolonged [Unknown]
  - Hypoxic-ischaemic encephalopathy [Unknown]
